FAERS Safety Report 5733064-3 (Version None)
Quarter: 2008Q2

REPORT INFORMATION
  Report Type: 
  Country: None (occurrence: None)
  Receive Date: 20080505
  Receipt Date: 20080226
  Transmission Date: 20081010
  Serious: Yes (Other)
  Sender: FDA-Public Use
  Company Number: PHEH2008US02328

PATIENT
  Age: 77 Year
  Sex: Female

DRUGS (5)
  1. EXELON [Suspect]
     Indication: DEMENTIA ALZHEIMER'S TYPE
     Dosage: 4.5 MG, QD, TRANSDERMAL
     Route: 062
     Dates: start: 20080121, end: 20080206
  2. LIPITOR [Concomitant]
  3. CLONAZEPAM [Concomitant]
  4. PREMARIN [Concomitant]
  5. NAMENDA [Concomitant]

REACTIONS (3)
  - AMMONIA INCREASED [None]
  - CONFUSIONAL STATE [None]
  - MENTAL STATUS CHANGES [None]
